FAERS Safety Report 8779503 (Version 1)
Quarter: 2012Q4

REPORT INFORMATION
  Report Type: 
  Country: TR (occurrence: TR)
  Receive Date: 20120912
  Receipt Date: 20120912
  Transmission Date: 20130627
  Serious: Yes (Death, Hospitalization, Other)
  Sender: FDA-Public Use
  Company Number: TR-ROCHE-1111655

PATIENT
  Age: 58 Year
  Sex: Male

DRUGS (1)
  1. RANIBIZUMAB [Suspect]
     Indication: CHOROIDAL NEOVASCULARISATION
     Route: 050

REACTIONS (4)
  - Cardiac arrest [Fatal]
  - Myocardial infarction [Fatal]
  - Endophthalmitis [Unknown]
  - Inappropriate schedule of drug administration [Unknown]
